FAERS Safety Report 6265860-0 (Version None)
Quarter: 2009Q3

REPORT INFORMATION
  Report Type: 
  Country: None (occurrence: None)
  Receive Date: 20090708
  Receipt Date: 20090708
  Transmission Date: 20100115
  Serious: Yes (Life-Threatening)
  Sender: FDA-Public Use
  Company Number: None

PATIENT
  Age: 48 Year
  Sex: Female
  Weight: 97.5234 kg

DRUGS (1)
  1. ABILIFY [Suspect]
     Indication: HALLUCINATION, AUDITORY
     Dosage: 1 TABLET AT BEDTIME BUCCAL
     Route: 002
     Dates: start: 20070410, end: 20071229

REACTIONS (3)
  - ACCIDENT [None]
  - LETHARGY [None]
  - POVERTY OF THOUGHT CONTENT [None]
